FAERS Safety Report 4944015-3 (Version None)
Quarter: 2006Q1

REPORT INFORMATION
  Report Type: 
  Country: None (occurrence: None)
  Receive Date: 20060315
  Receipt Date: 20060214
  Transmission Date: 20060701
  Serious: Yes (Hospitalization)
  Sender: FDA-Public Use
  Company Number: FR-ABBOTT-06P-056-0325224-00

PATIENT
  Sex: Female

DRUGS (8)
  1. RITONAVIR SOFT GELATIN CAPSULES [Suspect]
     Indication: HIV INFECTION
     Route: 048
     Dates: start: 20050629, end: 20051115
  2. TIPRANAVIR [Concomitant]
     Indication: HIV INFECTION
     Route: 048
     Dates: start: 20050629, end: 20051115
  3. FUZEON [Concomitant]
     Indication: HIV INFECTION
     Route: 058
     Dates: start: 20050629, end: 20051025
  4. VENLAFAXINE HCL [Concomitant]
     Indication: ANTIDEPRESSANT THERAPY
     Route: 048
  5. GABAPENTIN [Concomitant]
     Indication: ANTIDEPRESSANT THERAPY
     Route: 048
  6. CLONAZEPAM [Concomitant]
     Indication: ANTIDEPRESSANT THERAPY
     Route: 048
  7. CHLORPROMAZINE HCL [Concomitant]
     Indication: ANTIDEPRESSANT THERAPY
     Route: 048
  8. FOSAMPRENAVIR [Concomitant]
     Indication: HIV INFECTION
     Dates: start: 20051025

REACTIONS (4)
  - ASTHENIA [None]
  - DYSPNOEA [None]
  - EOSINOPHILIA [None]
  - PRURITUS [None]
